FAERS Safety Report 5118311-3 (Version None)
Quarter: 2006Q3

REPORT INFORMATION
  Report Type: 
  Country: None (occurrence: None)
  Receive Date: 20060926
  Receipt Date: 20060918
  Transmission Date: 20061208
  Serious: Yes (Death, Hospitalization)
  Sender: FDA-Public Use
  Company Number: IN200609004239

PATIENT
  Age: 78 Year
  Sex: Male

DRUGS (1)
  1. GEMCITE (GEMCITABINE HYDROCHLORIDE UNKNOWN MANUFACTURER)UNKNOWN [Suspect]
     Indication: NON-SMALL CELL LUNG CANCER
     Dosage: DAY 1 AND 8, INTRAVENOUS
     Route: 042
     Dates: start: 20060911, end: 20060911

REACTIONS (1)
  - MYOCARDIAL INFARCTION [None]
